FAERS Safety Report 19145814 (Version 1)
Quarter: 2021Q2

REPORT INFORMATION
  Report Type: Other
  Country: CA (occurrence: CA)
  Receive Date: 20210416
  Receipt Date: 20210416
  Transmission Date: 20210717
  Serious: Yes (Other)
  Sender: FDA-Public Use
  Company Number: CA-CELLTRION INC.-2021CA004636

PATIENT

DRUGS (6)
  1. CYCLOPHOSPHAMIDE. [Concomitant]
     Active Substance: CYCLOPHOSPHAMIDE
  2. TRASTUZUMAB (UNKNOWN) [Suspect]
     Active Substance: TRASTUZUMAB
     Indication: BREAST CANCER
     Route: 042
  3. TAXOL [Concomitant]
     Active Substance: PACLITAXEL
  4. KADCYLA [Suspect]
     Active Substance: ADO-TRASTUZUMAB EMTANSINE
     Indication: BREAST CANCER
     Dosage: 300 MILLIGRAM, 1 EVERY 3 WEEKS
     Route: 042
  5. DOXORUBICIN [Concomitant]
     Active Substance: DOXORUBICIN
  6. TAMOXIFEN [Concomitant]
     Active Substance: TAMOXIFEN

REACTIONS (8)
  - Heavy menstrual bleeding [Unknown]
  - Bone pain [Unknown]
  - Fatigue [Unknown]
  - Drug intolerance [Unknown]
  - Blood alkaline phosphatase increased [Unknown]
  - Neuropathy peripheral [Unknown]
  - Iron deficiency anaemia [Unknown]
  - Alanine aminotransferase increased [Unknown]
